FAERS Safety Report 4849906-X (Version None)
Quarter: 2005Q4

REPORT INFORMATION
  Report Type: 
  Country: None (occurrence: None)
  Receive Date: 20051114
  Receipt Date: 20050923
  Transmission Date: 20060501
  Serious: Yes (Other)
  Sender: FDA-Public Use
  Company Number: 20813

PATIENT
  Age: 61 Year
  Sex: Male
  Weight: 81.6475 kg

DRUGS (1)
  1. PROPOFOL [Suspect]
     Indication: SEDATIVE THERAPY
     Dosage: 150MG/IV
     Route: 042
     Dates: start: 20050923

REACTIONS (4)
  - ANAPHYLACTIC REACTION [None]
  - BRONCHOSPASM [None]
  - HYPOTENSION [None]
  - OEDEMA [None]
